FAERS Safety Report 5296292-X (Version None)
Quarter: 2007Q2

REPORT INFORMATION
  Report Type: 
  Country: None (occurrence: None)
  Receive Date: 20070413
  Receipt Date: 20070405
  Transmission Date: 20071010
  Serious: Yes (Other)
  Sender: FDA-Public Use
  Company Number: GB-JNJFOC-20070401363

PATIENT
  Age: 30 Year
  Sex: Male

DRUGS (2)
  1. TOPAMAX [Suspect]
     Indication: EPILEPSY
     Route: 065
  2. CLONAZEPAM [Concomitant]

REACTIONS (3)
  - MEMORY IMPAIRMENT [None]
  - SLEEP DISORDER [None]
  - WEIGHT DECREASED [None]
